FAERS Safety Report 6692446-6 (Version None)
Quarter: 2010Q2

REPORT INFORMATION
  Report Type: 
  Country: None (occurrence: None)
  Receive Date: 20100422
  Receipt Date: 20100419
  Transmission Date: 20101027
  Serious: Yes (Other)
  Sender: FDA-Public Use
  Company Number: A0775984A

PATIENT
  Age: 76 Year
  Sex: Female
  Weight: 81.8 kg

DRUGS (1)
  1. AVANDIA [Suspect]
     Indication: TYPE 2 DIABETES MELLITUS
     Dosage: 8MG PER DAY
     Route: 048
     Dates: start: 20050101, end: 20070101

REACTIONS (6)
  - BLADDER DISORDER [None]
  - BLINDNESS [None]
  - DIZZINESS [None]
  - DYSSTASIA [None]
  - INJURY [None]
  - RENAL DISORDER [None]
